FAERS Safety Report 12326385 (Version 3)
Quarter: 2016Q2

REPORT INFORMATION
  Report Type: Spontaneous
  Country: KR (occurrence: KR)
  Receive Date: 20160503
  Receipt Date: 20160524
  Transmission Date: 20160815
  Serious: Yes (Other)
  Sender: FDA-Public Use
  Company Number: KR-SA-2016SA083895

PATIENT
  Age: 65 Year
  Sex: Male

DRUGS (6)
  1. PIOGLITAZONE. [Interacting]
     Active Substance: PIOGLITAZONE
     Route: 065
     Dates: start: 201507
  2. CEFOTAXIME SODIUM [Suspect]
     Active Substance: CEFOTAXIME SODIUM
     Route: 042
     Dates: start: 201507
  3. PREGABALIN. [Interacting]
     Active Substance: PREGABALIN
     Route: 065
     Dates: start: 201507
  4. METRONIDAZOLE. [Interacting]
     Active Substance: METRONIDAZOLE
     Route: 042
     Dates: start: 20150730, end: 20150806
  5. VALSARTAN. [Interacting]
     Active Substance: VALSARTAN
     Route: 065
     Dates: start: 201507
  6. METFORMIN HYDROCHLORIDE/VILDAGLIPTIN [Suspect]
     Active Substance: METFORMIN HYDROCHLORIDE\VILDAGLIPTIN
     Dosage: VILDAGLIPINE 100 MG METFROMIN 2000 MG
     Route: 065
     Dates: start: 201507

REACTIONS (13)
  - Vestibular function test abnormal [Recovered/Resolved]
  - Nervous system disorder [Recovering/Resolving]
  - Ataxia [Recovered/Resolved]
  - Nystagmus [Recovered/Resolved]
  - Vestibular disorder [Recovered/Resolved]
  - Dizziness [Recovered/Resolved]
  - Vestibular disorder [Recovered/Resolved]
  - Drug interaction [Unknown]
  - Balance disorder [Recovered/Resolved]
  - Eye movement disorder [Recovered/Resolved]
  - Paresis [Unknown]
  - Vomiting [Recovered/Resolved]
  - Hyporeflexia [Unknown]

NARRATIVE: CASE EVENT DATE: 20150806
